FAERS Safety Report 17817125 (Version 1)
Quarter: 2020Q2

REPORT INFORMATION
  Report Type: Spontaneous
  Country: US (occurrence: US)
  Receive Date: 20200522
  Receipt Date: 20200522
  Transmission Date: 20200714
  Serious: No
  Sender: FDA-Public Use
  Company Number: US-ASTRAZENECA-2020SE66303

PATIENT
  Age: 65 Year
  Sex: Female
  Weight: 81.7 kg

DRUGS (7)
  1. NEXIUM 24HR [Suspect]
     Active Substance: ESOMEPRAZOLE MAGNESIUM
     Indication: GASTROOESOPHAGEAL REFLUX DISEASE
     Dosage: UNK, (15MAY2020-PART OF 3 BOTTLE PACKAGE THAT CONTAINED 14 CAPSULES IN EACH BOTTLE)
     Route: 048
     Dates: start: 20200515
  2. NEXIUM 24HR [Suspect]
     Active Substance: ESOMEPRAZOLE MAGNESIUM
     Indication: DYSPEPSIA
     Dosage: UNK, (15MAY2020-PART OF 3 BOTTLE PACKAGE THAT CONTAINED 14 CAPSULES IN EACH BOTTLE)
     Route: 048
     Dates: start: 20200515
  3. ADVIL [IBUPROFEN] [Concomitant]
     Active Substance: IBUPROFEN
     Indication: ARTHRITIS
     Dosage: 400 MG, DAILY, (2-200 MG STRENGTH TAKEN DAILY)
     Route: 065
     Dates: start: 2010
  4. PROPRANOLOL [Concomitant]
     Active Substance: PROPRANOLOL HYDROCHLORIDE
     Indication: BLOOD PRESSURE ABNORMAL
     Dosage: 160 MG, 1X/DAY, (160 MG TAKEN ONCE DAILY)
     Route: 065
     Dates: start: 2010
  5. NEXIUM 24HR [Suspect]
     Active Substance: ESOMEPRAZOLE MAGNESIUM
     Indication: DYSPEPSIA
     Dosage: 1 DF, 1X/DAY, (1 CAPSULE BY MOUTH TAKEN NIGHTLY ABOUT 10:00 PM)
     Route: 048
  6. NEXIUM 24HR [Suspect]
     Active Substance: ESOMEPRAZOLE MAGNESIUM
     Indication: GASTROOESOPHAGEAL REFLUX DISEASE
     Dosage: 1 DF, 1X/DAY, (1 CAPSULE BY MOUTH TAKEN NIGHTLY ABOUT 10:00 PM)
     Route: 048
  7. LIPITOR [Concomitant]
     Active Substance: ATORVASTATIN CALCIUM
     Indication: BLOOD CHOLESTEROL ABNORMAL
     Route: 065
     Dates: start: 2010

REACTIONS (6)
  - Therapeutic product effect delayed [Unknown]
  - Insomnia [Recovered/Resolved]
  - Product prescribing issue [Unknown]
  - Rebound effect [Recovered/Resolved]
  - Intentional product misuse [Unknown]
  - Off label use [Unknown]

NARRATIVE: CASE EVENT DATE: 2017
